FAERS Safety Report 7476473-7 (Version None)
Quarter: 2011Q2

REPORT INFORMATION
  Report Type: 
  Country: None (occurrence: None)
  Receive Date: 20110510
  Receipt Date: 20110510
  Transmission Date: 20111010
  Serious: Yes (Hospitalization)
  Sender: FDA-Public Use
  Company Number: None

PATIENT
  Age: 55 Year
  Sex: Male
  Weight: 58 kg

DRUGS (1)
  1. DIDANOSINE [Suspect]
     Indication: URTICARIA
     Dosage: 125 MG EVERY DAY PO
     Route: 048
     Dates: end: 20100711

REACTIONS (1)
  - PANCREATITIS [None]
